FAERS Safety Report 9149716 (Version 1)
Quarter: 2013Q1

REPORT INFORMATION
  Report Type: Report from Study
  Country: JP (occurrence: JP)
  Receive Date: 20130308
  Receipt Date: 20130308
  Transmission Date: 20140127
  Serious: Yes (Hospitalization)
  Sender: FDA-Public Use
  Company Number: JP-SANOFI-AVENTIS-2013SA020726

PATIENT
  Age: 71 Year
  Sex: Male
  Weight: 65.4 kg

DRUGS (9)
  1. PLAVIX [Suspect]
     Indication: ANGINA PECTORIS
     Route: 065
     Dates: start: 20110906, end: 20110906
  2. PLAVIX [Suspect]
     Indication: ANGINA PECTORIS
     Route: 065
     Dates: start: 20110907, end: 20110909
  3. BAYASPIRIN [Concomitant]
  4. ZYLORIC [Concomitant]
  5. LIPITOR [Concomitant]
  6. PRIMPERAN [Concomitant]
     Dates: start: 20110907, end: 20110907
  7. RASENAZOLIN [Concomitant]
     Dates: start: 20110907, end: 20110910
  8. LEPETAN [Concomitant]
     Dates: start: 20110907, end: 20110907
  9. PROTAMINE SULFATE [Concomitant]
     Dates: start: 20110907, end: 20110907

REACTIONS (1)
  - Cardiac tamponade [Recovered/Resolved]
